FAERS Safety Report 19875079 (Version 1)
Quarter: 2021Q3

REPORT INFORMATION
  Report Type: Spontaneous
  Country: US (occurrence: US)
  Receive Date: 20210920
  Receipt Date: 20210920
  Transmission Date: 20211014
  Serious: Yes (Other)
  Sender: FDA-Public Use
  Company Number: US-AUROBINDO-AUR-APL-2021-038855

PATIENT
  Age: 8 Year
  Sex: Female

DRUGS (4)
  1. ETOPOSIDE. [Suspect]
     Active Substance: ETOPOSIDE
     Indication: INTRACRANIAL GERM CELL TUMOUR
     Dosage: 150 MG/M2 (1?3 CYCLES)
     Route: 042
  2. CARBOPLATIN. [Suspect]
     Active Substance: CARBOPLATIN
     Indication: INTRACRANIAL GERM CELL TUMOUR
     Dosage: 600 MG/M2 (1 OF CYCLE)
     Route: 042
  3. NITRIC OXIDE. [Suspect]
     Active Substance: NITRIC OXIDE
     Indication: PRODUCT USED FOR UNKNOWN INDICATION
     Dosage: UNK
     Route: 065
  4. IFOSFAMIDE. [Suspect]
     Active Substance: IFOSFAMIDE
     Indication: INTRACRANIAL GERM CELL TUMOUR
     Dosage: 1800 MG/M2 (1?5 CYCLES)
     Route: 042

REACTIONS (8)
  - Product use in unapproved indication [Unknown]
  - Pulmonary hypertension [Unknown]
  - Tumour lysis syndrome [Unknown]
  - Pulmonary haemorrhage [Unknown]
  - Respiratory distress [Unknown]
  - Choriocarcinoma [Unknown]
  - Haemothorax [Recovered/Resolved]
  - Pneumothorax [Recovered/Resolved]
